FAERS Safety Report 9803494 (Version 1)
Quarter: 2014Q1

REPORT INFORMATION
  Report Type: Spontaneous
  Country: GB (occurrence: None)
  Receive Date: 20140103
  Receipt Date: 20140103
  Transmission Date: 20141002
  Serious: Yes (Other)
  Sender: FDA-Public Use
  Company Number: GB-DEXPHARM-20131179

PATIENT
  Age: 62 Year
  Sex: Female

DRUGS (1)
  1. OMEPRAZOLE [Suspect]
     Route: 048
     Dates: start: 2008, end: 20131204

REACTIONS (4)
  - Flushing [None]
  - Gynaecomastia [None]
  - Pruritus [None]
  - Pollakiuria [None]
